FAERS Safety Report 15728926 (Version 1)
Quarter: 2018Q4

REPORT INFORMATION
  Report Type: Spontaneous
  Country: FR (occurrence: FR)
  Receive Date: 20181217
  Receipt Date: 20181217
  Transmission Date: 20190205
  Serious: Yes (Hospitalization)
  Sender: FDA-Public Use
  Company Number: PHHY2018FR185407

PATIENT
  Age: 45 Year
  Sex: Male
  Weight: 117 kg

DRUGS (3)
  1. CLOMIPRAMINE HYDROCHLORIDE. [Suspect]
     Active Substance: CLOMIPRAMINE HYDROCHLORIDE
     Indication: PAIN
     Dosage: 150 MG, QD
     Route: 048
     Dates: start: 2016
  2. SEVREDOL [Suspect]
     Active Substance: MORPHINE
     Indication: PAIN
     Dosage: 440 MG, QD
     Route: 048
     Dates: start: 2016
  3. OXYCONTIN [Suspect]
     Active Substance: OXYCODONE HYDROCHLORIDE
     Indication: PAIN
     Dosage: 160 MG, QD
     Route: 048
     Dates: start: 2016

REACTIONS (1)
  - Drug abuse [Not Recovered/Not Resolved]

NARRATIVE: CASE EVENT DATE: 2016
